FAERS Safety Report 26208801 (Version 1)
Quarter: 2025Q4

REPORT INFORMATION
  Report Type: Spontaneous
  Country: EU (occurrence: EU)
  Receive Date: 20251229
  Receipt Date: 20251229
  Transmission Date: 20260118
  Serious: Yes (Other)
  Sender: VELOXIS PHARMACEUTICALS
  Company Number: EU-ROCHE-2534217

PATIENT
  Age: 33 Year

DRUGS (7)
  1. TACROLIMUS [Suspect]
     Active Substance: TACROLIMUS
     Indication: Renal transplant
     Dosage: UNK
     Route: 065
  2. PREDNISOLONE [Suspect]
     Active Substance: PREDNISOLONE
     Indication: Renal transplant
     Dosage: UNK
  3. MYCOPHENOLATE MOFETIL [Suspect]
     Active Substance: MYCOPHENOLATE MOFETIL
     Indication: Renal transplant
     Dosage: UNK
     Route: 065
  4. CYCLOPHOSPHAMIDE [Suspect]
     Active Substance: CYCLOPHOSPHAMIDE
     Indication: Renal transplant
     Dosage: UNK
     Route: 061
  5. RITUXIMAB [Concomitant]
     Active Substance: RITUXIMAB
     Indication: Focal segmental glomerulosclerosis
     Dosage: 375 MG/M2
  6. TELMISARTAN [Concomitant]
     Active Substance: TELMISARTAN
     Indication: Renin-angiotensin system inhibition
     Dosage: 40
     Route: 065
  7. ROSUVASTATIN [Concomitant]
     Active Substance: ROSUVASTATIN
     Indication: Renin-angiotensin system inhibition
     Dosage: 20 MG, QD
     Route: 065

REACTIONS (2)
  - Focal segmental glomerulosclerosis [Unknown]
  - Cytomegalovirus infection reactivation [Unknown]
